FAERS Safety Report 13440381 (Version 1)
Quarter: 2017Q2

REPORT INFORMATION
  Report Type: Spontaneous
  Country: GB (occurrence: GB)
  Receive Date: 20170413
  Receipt Date: 20170413
  Transmission Date: 20170830
  Serious: Yes (Life-Threatening, Other)
  Sender: FDA-Public Use
  Company Number: GB-ASTRAZENECA-2017SE38171

PATIENT
  Age: 38 Year
  Sex: Female
  Weight: 105 kg

DRUGS (5)
  1. ZOLADEX [Suspect]
     Active Substance: GOSERELIN ACETATE
     Indication: ENDOMETRIOSIS
     Dosage: 3 UNITS OF 3.6 DOSE
     Route: 058
     Dates: start: 20161013, end: 20170213
  2. TIBOLONE [Concomitant]
     Active Substance: TIBOLONE
     Dates: start: 20161229
  3. SERTRALINE [Concomitant]
     Active Substance: SERTRALINE HYDROCHLORIDE
  4. QUETIAPINE. [Concomitant]
     Active Substance: QUETIAPINE
     Dosage: 3 UNITS OF 100 DOSE DAILY AT NIGHT
  5. LANSOPRAZOLE. [Concomitant]
     Active Substance: LANSOPRAZOLE

REACTIONS (4)
  - Obstructive airways disorder [Unknown]
  - Wheezing [Unknown]
  - Fatigue [Unknown]
  - Cough [Unknown]

NARRATIVE: CASE EVENT DATE: 20161105
